FAERS Safety Report 15449108 (Version 1)
Quarter: 2018Q3

REPORT INFORMATION
  Report Type: Report from Study
  Country: None (occurrence: US)
  Receive Date: 20180930
  Receipt Date: 20180930
  Transmission Date: 20181010
  Serious: Yes (Other)
  Sender: FDA-Public Use
  Company Number: US-ABBVIE-18K-163-2503719-00

PATIENT
  Age: 48 Year
  Sex: Female
  Weight: 103.06 kg

DRUGS (1)
  1. HUMIRA [Suspect]
     Active Substance: ADALIMUMAB
     Indication: ANKYLOSING SPONDYLITIS
     Dosage: INJECT CONTENTS OF 1 PEN (40 MG) UNDER THE SKIN
     Route: 058
     Dates: start: 20180814

REACTIONS (3)
  - Abdominal pain lower [Unknown]
  - Intra-abdominal haemorrhage [Unknown]
  - Injection site extravasation [Unknown]

NARRATIVE: CASE EVENT DATE: 2018
